FAERS Safety Report 4589572-4 (Version None)
Quarter: 2005Q1

REPORT INFORMATION
  Report Type: 
  Country: None (occurrence: None)
  Receive Date: 20050217
  Receipt Date: 20050208
  Transmission Date: 20050727
  Serious: Yes (Hospitalization, Disabling)
  Sender: FDA-Public Use
  Company Number: 2005-01-1576

PATIENT
  Age: 47 Year
  Sex: Male

DRUGS (9)
  1. INTRON A [Suspect]
     Indication: HEPATITIS C
     Dosage: 10 MU QD-TIW INTRAMUSCULAR
     Route: 030
     Dates: start: 20030403, end: 20030416
  2. INTRON A [Suspect]
     Indication: HEPATITIS C
     Dosage: 10 MU QD-TIW INTRAMUSCULAR
     Route: 030
     Dates: start: 20030403, end: 20030901
  3. INTRON A [Suspect]
     Indication: HEPATITIS C
     Dosage: 10 MU QD-TIW INTRAMUSCULAR
     Route: 030
     Dates: start: 20030418, end: 20030901
  4. REBETOL [Suspect]
     Indication: HEPATITIS C
     Dosage: 800-600 MG ORAL; 800 MG ORAL; 600 MG ORAL
     Route: 048
     Dates: start: 20030403, end: 20030703
  5. REBETOL [Suspect]
     Indication: HEPATITIS C
     Dosage: 800-600 MG ORAL; 800 MG ORAL; 600 MG ORAL
     Route: 048
     Dates: start: 20030403, end: 20030901
  6. REBETOL [Suspect]
     Indication: HEPATITIS C
     Dosage: 800-600 MG ORAL; 800 MG ORAL; 600 MG ORAL
     Route: 048
     Dates: start: 20030704, end: 20030901
  7. ANHYPEN TABLETS [Concomitant]
  8. REBAMIPIDE [Concomitant]
  9. ZOPICLONE [Concomitant]

REACTIONS (5)
  - OPTIC ISCHAEMIC NEUROPATHY [None]
  - PAPILLOEDEMA [None]
  - PUPILLARY REFLEX IMPAIRED [None]
  - RETINAL VASCULAR DISORDER [None]
  - VISUAL FIELD DEFECT [None]
